FAERS Safety Report 20836224 (Version 2)
Quarter: 2022Q2

REPORT INFORMATION
  Report Type: Report from Study
  Country: US (occurrence: US)
  Receive Date: 20220516
  Receipt Date: 20220531
  Transmission Date: 20220721
  Serious: Yes (Other)
  Sender: FDA-Public Use
  Company Number: US-BRISTOL-MYERS SQUIBB COMPANY-2022-014961

PATIENT
  Age: 64 Year
  Sex: Female
  Weight: 64.4 kg

DRUGS (2)
  1. REVLIMID [Suspect]
     Active Substance: LENALIDOMIDE
     Indication: Plasma cell myeloma
     Route: 048
  2. REVLIMID [Suspect]
     Active Substance: LENALIDOMIDE
     Indication: Plasma cell myeloma in remission
     Route: 048
     Dates: start: 202108

REACTIONS (6)
  - Feeling abnormal [Unknown]
  - Muscular weakness [Unknown]
  - Blood pressure decreased [Unknown]
  - Asthenia [Unknown]
  - Musculoskeletal stiffness [Unknown]
  - Tremor [Unknown]
